FAERS Safety Report 14331748 (Version 2)
Quarter: 2018Q2

REPORT INFORMATION
  Report Type: Spontaneous
  Country: US (occurrence: US)
  Receive Date: 20171228
  Receipt Date: 20180606
  Transmission Date: 20180711
  Serious: Yes (Other)
  Sender: FDA-Public Use
  Company Number: US-ASTRAZENECA-2017SF30439

PATIENT
  Age: 26593 Day
  Sex: Female
  Weight: 72.6 kg

DRUGS (11)
  1. ZEGERID [Suspect]
     Active Substance: OMEPRAZOLE\SODIUM BICARBONATE
     Route: 065
  2. METFORMIN [Concomitant]
     Active Substance: METFORMIN HYDROCHLORIDE
     Dates: start: 2010, end: 2018
  3. PRILOSEC [Suspect]
     Active Substance: OMEPRAZOLE MAGNESIUM
     Route: 048
     Dates: start: 2001, end: 2016
  4. DEXILANT [Suspect]
     Active Substance: DEXLANSOPRAZOLE
     Route: 065
  5. LEVOTHYROXINE. [Concomitant]
     Active Substance: LEVOTHYROXINE
     Dates: start: 2010, end: 2018
  6. NEXIUM [Suspect]
     Active Substance: ESOMEPRAZOLE MAGNESIUM
     Indication: GASTROOESOPHAGEAL REFLUX DISEASE
     Route: 048
     Dates: start: 2003, end: 2008
  7. NOVOLOG [Concomitant]
     Active Substance: INSULIN ASPART
     Dates: start: 2013, end: 2018
  8. PREVACID [Suspect]
     Active Substance: LANSOPRAZOLE
     Route: 065
     Dates: start: 2000
  9. PROTONIX [Suspect]
     Active Substance: PANTOPRAZOLE SODIUM
     Route: 065
  10. METOLAZONE. [Concomitant]
     Active Substance: METOLAZONE
     Dates: start: 2010, end: 2018
  11. SIMVASTATIN. [Concomitant]
     Active Substance: SIMVASTATIN
     Dates: start: 2010, end: 2018

REACTIONS (7)
  - Renal injury [Unknown]
  - Renal failure [Unknown]
  - Type 2 diabetes mellitus [Unknown]
  - Constipation [Unknown]
  - Hyperlipidaemia [Unknown]
  - Chronic kidney disease [Unknown]
  - Essential hypertension [Unknown]

NARRATIVE: CASE EVENT DATE: 20140410
